FAERS Safety Report 13719163 (Version 1)
Quarter: 2017Q3

REPORT INFORMATION
  Report Type: Spontaneous
  Country: US (occurrence: US)
  Receive Date: 20170705
  Receipt Date: 20170705
  Transmission Date: 20171127
  Serious: Yes (Other)
  Sender: FDA-Public Use
  Company Number: US-BEH-2017081756

PATIENT
  Sex: Female
  Weight: 28.12 kg

DRUGS (35)
  1. PULMICORT TURBUHALER [Concomitant]
     Active Substance: BUDESONIDE
  2. ROBITUSSIN PEDIATRIC COUGH + COLD CF [Concomitant]
  3. GABAPENTIN. [Concomitant]
     Active Substance: GABAPENTIN
  4. PEPCID AC [Concomitant]
     Active Substance: FAMOTIDINE
  5. MILK OF MAGNESIA [Concomitant]
     Active Substance: MAGNESIUM HYDROXIDE
  6. HIZENTRA [Suspect]
     Active Substance: HUMAN IMMUNOGLOBULIN G
     Indication: ADJUSTMENT DISORDER
     Dosage: 8 G, UNK
     Route: 058
     Dates: start: 20160307
  7. HIZENTRA [Suspect]
     Active Substance: HUMAN IMMUNOGLOBULIN G
     Indication: RETT SYNDROME
     Dosage: UNK
     Route: 058
  8. EPINEPHRINE. [Concomitant]
     Active Substance: EPINEPHRINE
  9. EPIPEN JR [Concomitant]
     Active Substance: EPINEPHRINE
  10. FLUCONAZOLE. [Concomitant]
     Active Substance: FLUCONAZOLE
  11. POLY-VI-SOL                        /00200301/ [Concomitant]
  12. DIAZEPAM. [Concomitant]
     Active Substance: DIAZEPAM
  13. L-CARNITINE                        /00878601/ [Concomitant]
     Active Substance: LEVOCARNITINE
  14. SIMETHICONE (DIMETHICONE) [Concomitant]
     Active Substance: DIMETHICONE
  15. VITAMIN C [Concomitant]
     Active Substance: ASCORBIC ACID
  16. OXYGEN. [Concomitant]
     Active Substance: OXYGEN
  17. VITAMIN D3 [Concomitant]
     Active Substance: CHOLECALCIFEROL
  18. TOBRAMYCIN. [Concomitant]
     Active Substance: TOBRAMYCIN
  19. ACETAMINOPHEN. [Concomitant]
     Active Substance: ACETAMINOPHEN
  20. LMX                                /00033401/ [Concomitant]
  21. AUGMENTIN [Concomitant]
     Active Substance: AMOXICILLIN\CLAVULANATE POTASSIUM
  22. LAMOTRIGINE. [Concomitant]
     Active Substance: LAMOTRIGINE
  23. BACLOFEN. [Concomitant]
     Active Substance: BACLOFEN
  24. LORATADINE. [Concomitant]
     Active Substance: LORATADINE
  25. CARAFATE [Concomitant]
     Active Substance: SUCRALFATE
  26. IBUPROFEN. [Concomitant]
     Active Substance: IBUPROFEN
  27. PREVACID [Concomitant]
     Active Substance: LANSOPRAZOLE
  28. DIASTAT                            /00017001/ [Concomitant]
  29. COCONUT OIL [Concomitant]
     Active Substance: COCONUT OIL
  30. DIPHENHYDRAMINE. [Concomitant]
     Active Substance: DIPHENHYDRAMINE
  31. ZYRTEC [Concomitant]
     Active Substance: CETIRIZINE HYDROCHLORIDE
  32. FLONASE [Concomitant]
     Active Substance: FLUTICASONE PROPIONATE
  33. ALBUTEROL                          /00139501/ [Concomitant]
     Active Substance: ALBUTEROL
  34. LAMICTAL [Concomitant]
     Active Substance: LAMOTRIGINE
  35. SODIUM CHLORIDE. [Concomitant]
     Active Substance: SODIUM CHLORIDE

REACTIONS (6)
  - Somnolence [Unknown]
  - Diarrhoea [Unknown]
  - Neutropenia [Unknown]
  - Pulmonary congestion [Unknown]
  - Increased viscosity of bronchial secretion [Unknown]
  - Lethargy [Unknown]
